FAERS Safety Report 14753297 (Version 1)
Quarter: 2018Q2

REPORT INFORMATION
  Report Type: Spontaneous
  Country: US (occurrence: US)
  Receive Date: 20180412
  Receipt Date: 20180412
  Transmission Date: 20180711
  Serious: No
  Sender: FDA-Public Use
  Company Number: US-ALLERGAN-1801676US

PATIENT
  Age: 46 Year
  Sex: Female

DRUGS (4)
  1. VITAMIN D [Concomitant]
     Active Substance: CHOLECALCIFEROL
     Route: 065
  2. FEMRING [Suspect]
     Active Substance: ESTRADIOL ACETATE
     Dosage: 0.05 MG, QD, NEW RING EVERY 3 MONTHS
     Route: 067
     Dates: start: 20171224
  3. FISH OIL [Concomitant]
     Active Substance: FISH OIL
     Route: 065
  4. FEMRING [Suspect]
     Active Substance: ESTRADIOL ACETATE
     Indication: HORMONE REPLACEMENT THERAPY
     Dosage: 0.05 UNK, UNK
     Route: 067
     Dates: start: 2016

REACTIONS (4)
  - Hot flush [Not Recovered/Not Resolved]
  - Off label use [Unknown]
  - Drug effect decreased [Unknown]
  - Headache [Recovered/Resolved]
